FAERS Safety Report 21327286 (Version 3)
Quarter: 2022Q4

REPORT INFORMATION
  Report Type: Spontaneous
  Country: FR (occurrence: FR)
  Receive Date: 20220913
  Receipt Date: 20221014
  Transmission Date: 20230113
  Serious: Yes (Other)
  Sender: FDA-Public Use
  Company Number: FR-GILEAD-2022-0588623

PATIENT
  Age: 73 Year
  Sex: Female
  Weight: 77 kg

DRUGS (7)
  1. CETIRIZINE [Suspect]
     Active Substance: CETIRIZINE HYDROCHLORIDE
     Indication: Product used for unknown indication
     Dosage: UNK
     Route: 065
  2. SACITUZUMAB GOVITECAN [Suspect]
     Active Substance: SACITUZUMAB GOVITECAN
     Indication: Triple negative breast cancer
     Dosage: 10 MILLIGRAM/KILOGRAM (10 MG/KG ON C1D1 AND C1D8)
     Route: 042
     Dates: start: 20220527, end: 20220603
  3. SACITUZUMAB GOVITECAN [Suspect]
     Active Substance: SACITUZUMAB GOVITECAN
     Dosage: 10 MILLIGRAM/KILOGRAM (10 MG/KG ON C2D1 AND C2D8)
     Route: 042
     Dates: start: 20220624, end: 20220701
  4. SACITUZUMAB GOVITECAN [Suspect]
     Active Substance: SACITUZUMAB GOVITECAN
     Dosage: 10 MILLIGRAM/KILOGRAM (10 MG/KG ON C3D1 AND C3D8)
     Route: 042
     Dates: start: 20220715, end: 20220722
  5. SACITUZUMAB GOVITECAN [Suspect]
     Active Substance: SACITUZUMAB GOVITECAN
     Dosage: 10 MILLIGRAM/KILOGRAM (10 MG/KG ON C4D1 AND D8 DOSE REPORTED AS 10 MG/M2)
     Route: 042
     Dates: start: 20220805, end: 20220812
  6. SACITUZUMAB GOVITECAN [Suspect]
     Active Substance: SACITUZUMAB GOVITECAN
     Dosage: C5D1 10MG/KG
     Route: 042
     Dates: start: 20220826
  7. SACITUZUMAB GOVITECAN [Suspect]
     Active Substance: SACITUZUMAB GOVITECAN
     Dosage: 10 MILLIGRAM/KILOGRAM (10 MG/KG ON C6D1 AND D8 )
     Route: 042
     Dates: start: 20220919, end: 20220926

REACTIONS (4)
  - Neutropenia [Recovered/Resolved]
  - Rash [Recovered/Resolved]
  - Pruritus [Recovered/Resolved]
  - Inappropriate schedule of product administration [Recovered/Resolved]

NARRATIVE: CASE EVENT DATE: 20220617
